FAERS Safety Report 6074050-6 (Version None)
Quarter: 2009Q1

REPORT INFORMATION
  Report Type: 
  Country: None (occurrence: None)
  Receive Date: 20090211
  Receipt Date: 20090206
  Transmission Date: 20090719
  Serious: Yes (Death, Hospitalization)
  Sender: FDA-Public Use
  Company Number: A0729728A

PATIENT
  Age: 75 Year
  Sex: Female

DRUGS (22)
  1. AVANDAMET [Suspect]
     Route: 048
     Dates: start: 20030827, end: 20060102
  2. AVANDIA [Suspect]
     Dosage: 8MG PER DAY
     Route: 048
     Dates: start: 20060102, end: 20060515
  3. METOPROLOL TARTRATE [Concomitant]
     Dates: start: 20051227
  4. METHYLPREDNISOLONE [Concomitant]
     Dates: start: 20060202
  5. PLAVIX [Concomitant]
  6. NITROGLYCERIN [Concomitant]
     Dates: start: 20051227
  7. ALBUTEROL [Concomitant]
  8. ZITHROMAX [Concomitant]
  9. LOPRESSOR [Concomitant]
  10. EXELON [Concomitant]
  11. LASIX [Concomitant]
  12. POTASSIUM CHLORIDE [Concomitant]
  13. MEDROL [Concomitant]
  14. GLUCOPHAGE [Concomitant]
  15. MEGACE [Concomitant]
  16. PHENERGAN [Concomitant]
  17. DARVOCET [Concomitant]
  18. OSCAL [Concomitant]
  19. AMBIEN [Concomitant]
  20. TOPROL-XL [Concomitant]
  21. PRINIVIL [Concomitant]
  22. NITRO-DUR [Concomitant]

REACTIONS (6)
  - CARDIAC FAILURE CONGESTIVE [None]
  - CARDIOGENIC SHOCK [None]
  - CARDIOMYOPATHY [None]
  - CEREBROVASCULAR ACCIDENT [None]
  - MYOCARDIAL INFARCTION [None]
  - PAIN [None]
